FAERS Safety Report 5076158-0 (Version None)
Quarter: 2006Q3

REPORT INFORMATION
  Report Type: 
  Country: None (occurrence: None)
  Receive Date: 20060807
  Receipt Date: 20060725
  Transmission Date: 20061208
  Serious: Yes (Hospitalization)
  Sender: FDA-Public Use
  Company Number: 2005BH000887

PATIENT
  Age: 79 Year
  Sex: Female
  Weight: 146.5118 kg

DRUGS (15)
  1. HEPARIN SODIUM [Suspect]
     Indication: AORTIC VALVE REPLACEMENT
     Dates: start: 20030101
  2. PANTOPRAZOLE SODIUM [Concomitant]
  3. AMIODARONE HCL [Concomitant]
  4. IPRATROPIUM BROMIDE [Concomitant]
  5. ALBUTEROL [Concomitant]
  6. FOLIC ACID [Concomitant]
  7. LEVOTHYROXINE SODIUM [Concomitant]
  8. LOTRIMIN [Concomitant]
  9. WARFARIN SODIUM [Concomitant]
  10. NYSTATIN [Concomitant]
  11. DOCUSATE SODIUM [Concomitant]
  12. METOCLOPRAMIDE [Concomitant]
  13. ZINC SULFATE [Concomitant]
  14. IRON SULFATETHIAMIN COMPOUND TAB [Concomitant]
  15. REGULAR INSULIN [Concomitant]

REACTIONS (7)
  - ANTI-PLATELET ANTIBODY [None]
  - CARDIAC FAILURE CONGESTIVE [None]
  - DERMATITIS BULLOUS [None]
  - DRUG SPECIFIC ANTIBODY PRESENT [None]
  - ECCHYMOSIS [None]
  - GASTROINTESTINAL HAEMORRHAGE [None]
  - HEPARIN-INDUCED THROMBOCYTOPENIA [None]
